FAERS Safety Report 4660411-6 (Version None)
Quarter: 2005Q2

REPORT INFORMATION
  Report Type: 
  Country: None (occurrence: None)
  Receive Date: 20050512
  Receipt Date: 20050503
  Transmission Date: 20051028
  Serious: Yes (Death, Hospitalization)
  Sender: FDA-Public Use
  Company Number: US-SANOFI-SYNTHELABO-A03200501340

PATIENT
  Sex: Male
  Weight: 67.12 kg

DRUGS (11)
  1. PLAVIX [Suspect]
     Indication: DRUG USE FOR UNKNOWN INDICATION
     Route: 048
     Dates: start: 20050101
  2. FLOMAX [Concomitant]
     Dosage: UNK
     Route: 048
     Dates: start: 20050101
  3. ZOCOR [Concomitant]
     Dosage: UNK
     Route: 048
     Dates: start: 20050101
  4. METOPROLOL TARTRATE [Concomitant]
     Dosage: UNK
     Route: 048
     Dates: start: 20050101
  5. URECHOLINE [Concomitant]
     Dosage: UNK
     Route: 048
     Dates: start: 20050101
  6. COMBIVENT [Concomitant]
     Dosage: UNK
     Route: 048
     Dates: start: 20050101
  7. LASIX [Concomitant]
     Dosage: UNK
     Route: 048
     Dates: start: 20050101
  8. PROSCAR [Concomitant]
     Dosage: UNK
     Route: 048
     Dates: start: 20050101
  9. AMBIEN [Concomitant]
     Dosage: UNK
     Route: 048
     Dates: start: 20050101
  10. TYLOX [Concomitant]
     Dosage: UNK
     Route: 048
     Dates: start: 19980201
  11. ALPRAZOLAM [Concomitant]
     Dosage: UNK
     Route: 048
     Dates: start: 20050310

REACTIONS (5)
  - ARTHRITIS [None]
  - ATRIAL FIBRILLATION [None]
  - BRADYCARDIA [None]
  - CIRCULATORY COLLAPSE [None]
  - RESPIRATORY ARREST [None]
